FAERS Safety Report 10209942 (Version 3)
Quarter: 2014Q2

REPORT INFORMATION
  Report Type: Spontaneous
  Country: JP (occurrence: JP)
  Receive Date: 20140602
  Receipt Date: 20140620
  Transmission Date: 20141212
  Serious: Yes (Other)
  Sender: FDA-Public Use
  Company Number: PHHY2014JP066292

PATIENT
  Age: 62 Year
  Sex: Female

DRUGS (2)
  1. ZOMETA [Suspect]
     Indication: BREAST CANCER METASTATIC
     Dosage: 4 MG, PER ADMINISTRATION
     Route: 041
     Dates: start: 200510, end: 201108
  2. ZOMETA [Suspect]
     Indication: METASTASES TO BONE

REACTIONS (15)
  - Osteonecrosis of jaw [Recovering/Resolving]
  - Tooth loss [Unknown]
  - Loose tooth [Unknown]
  - Impaired healing [Unknown]
  - Abscess jaw [Unknown]
  - Gingival swelling [Unknown]
  - Fistula discharge [Unknown]
  - Erythema [Unknown]
  - Bone disorder [Unknown]
  - Hypoaesthesia [Unknown]
  - Primary sequestrum [Recovered/Resolved]
  - Metastases to lung [Unknown]
  - Pleural effusion [Unknown]
  - Metastases to central nervous system [Unknown]
  - Metastases to bone [Unknown]
